FAERS Safety Report 15951754 (Version 1)
Quarter: 2019Q1

REPORT INFORMATION
  Report Type: Report from Study
  Country: MX (occurrence: MX)
  Receive Date: 20190212
  Receipt Date: 20190212
  Transmission Date: 20190417
  Serious: Yes (Other)
  Sender: FDA-Public Use
  Company Number: PHHY2019MX004741

PATIENT
  Age: 71 Year
  Sex: Female
  Weight: 68 kg

DRUGS (4)
  1. VALSARTAN. [Suspect]
     Active Substance: VALSARTAN
     Indication: HYPERTENSION
     Dosage: 2 DF, QD
     Route: 048
     Dates: start: 1989
  2. GALVUS MET [Suspect]
     Active Substance: METFORMIN HYDROCHLORIDE\VILDAGLIPTIN
     Indication: TYPE 2 DIABETES MELLITUS
     Dosage: 1 DF, TID (VILDAGLIPTIN 50MG, METFORMIN 850 MG)
     Route: 048
     Dates: start: 2015
  3. NIFEDIPINE. [Concomitant]
     Active Substance: NIFEDIPINE
     Indication: HYPERTENSION
     Dosage: 1 DF, BID
     Route: 048
     Dates: start: 2014
  4. METOPROLOL. [Concomitant]
     Active Substance: METOPROLOL
     Indication: HYPERTENSION
     Dosage: 1 DF, QD (2 YEARS AGO)
     Route: 048

REACTIONS (3)
  - Retinal infarction [Not Recovered/Not Resolved]
  - Retinal infarction [Recovered/Resolved with Sequelae]
  - Incorrect dose administered [Not Recovered/Not Resolved]

NARRATIVE: CASE EVENT DATE: 201807
